FAERS Safety Report 5835020-3 (Version None)
Quarter: 2008Q3

REPORT INFORMATION
  Report Type: 
  Country: None (occurrence: None)
  Receive Date: 20080806
  Receipt Date: 20080731
  Transmission Date: 20090109
  Serious: Yes (Other)
  Sender: FDA-Public Use
  Company Number: US-BRISTOL-MYERS SQUIBB COMPANY-14285209

PATIENT
  Age: 55 Year
  Sex: Male
  Weight: 86 kg

DRUGS (3)
  1. ERBITUX [Suspect]
     Indication: HEAD AND NECK CANCER
     Dosage: START DATE OF FIRST COURSE- 07JUL08,TOTAL NO OF COURSES-2
     Route: 042
     Dates: start: 20080707, end: 20080707
  2. CISPLATIN [Suspect]
     Indication: HEAD AND NECK CANCER
     Dosage: START DATE OF FIRST COURSE- 07JUL08,TOTAL NO OF COURSES-2
     Route: 042
     Dates: start: 20080707, end: 20080707
  3. RADIATION THERAPY [Suspect]
     Indication: HEAD AND NECK CANCER
     Dosage: 1 DOSAGE FORM = 12 GY, START DATE OF FIRST COURSE -07JUL08
     Dates: start: 20080707, end: 20080711

REACTIONS (2)
  - HYPOKALAEMIA [None]
  - SYNCOPE [None]
